FAERS Safety Report 4960906-1 (Version None)
Quarter: 2006Q2

REPORT INFORMATION
  Report Type: 
  Country: None (occurrence: None)
  Receive Date: 20060403
  Receipt Date: 20060327
  Transmission Date: 20061013
  Serious: Yes (Life-Threatening, Hospitalization)
  Sender: FDA-Public Use
  Company Number: US-SANOFI-SYNTHELABO-A03200601781

PATIENT
  Sex: Male

DRUGS (3)
  1. AMBIEN [Suspect]
     Indication: DRUG USE FOR UNKNOWN INDICATION
     Dosage: UNK
     Route: 048
     Dates: end: 20060127
  2. CAMPRAL [Interacting]
     Route: 048
     Dates: start: 20060122, end: 20060127
  3. LOPRESSOR [Concomitant]
     Dosage: UNK
     Route: 048

REACTIONS (8)
  - CARDIAC ARREST [None]
  - CARDIAC ENZYMES INCREASED [None]
  - COMA [None]
  - DRUG INTERACTION [None]
  - ELECTROENCEPHALOGRAM ABNORMAL [None]
  - PAIN [None]
  - VENTRICULAR FIBRILLATION [None]
  - VENTRICULAR TACHYCARDIA [None]
